FAERS Safety Report 16688365 (Version 1)
Quarter: 2019Q3

REPORT INFORMATION
  Report Type: Spontaneous
  Country: US (occurrence: US)
  Receive Date: 20190809
  Receipt Date: 20190809
  Transmission Date: 20191004
  Serious: Yes (Life-Threatening, Other)
  Sender: FDA-Public Use
  Company Number: US-BRACCO-2019US03981

PATIENT
  Age: 82 Year
  Sex: Female

DRUGS (1)
  1. BARIUM SULPHATE [Suspect]
     Active Substance: BARIUM SULFATE
     Indication: OESOPHAGRAM
     Route: 048

REACTIONS (2)
  - Acute respiratory failure [Recovered/Resolved]
  - Aspiration [Recovered/Resolved]
